FAERS Safety Report 9250513 (Version 1)
Quarter: 2013Q1

REPORT INFORMATION
  Report Type: Spontaneous
  Country: US (occurrence: None)
  Receive Date: 20130305
  Receipt Date: 20130305
  Transmission Date: 20140127
  Serious: Yes (Other)
  Sender: FDA-Public Use
  Company Number: 163-21880-12061244 (0)

PATIENT
  Age: 79 Year
  Sex: Male
  Weight: 72.2 kg

DRUGS (11)
  1. REVLIMID [Suspect]
     Indication: PLASMA CELL MYELOMA
     Dosage: 10MG, 1 IN 1 D, PO
     Route: 048
     Dates: start: 20120123, end: 20120607
  2. OMEPRAZOLE (OMEPRAZOLE) [Concomitant]
  3. ALLOPURINOL [Concomitant]
  4. LUTEIN (XANTOFYL) [Concomitant]
  5. VITAMINS (VITAMINS) [Concomitant]
  6. WARFARIN (WARFARIN) [Concomitant]
  7. SCOPOLOMINE BASE (HYOSCINE) [Concomitant]
  8. MORPHINE [Concomitant]
  9. PROCHLORPERAZINE (PROCHLORPERAZINE) [Concomitant]
  10. NYSTATIN (NYSTATIN) (SUSPENSION) [Concomitant]
  11. DIGOXIN (DIGOXIN) [Concomitant]

REACTIONS (2)
  - Nausea [None]
  - Vomiting [None]
